FAERS Safety Report 7510449-6 (Version None)
Quarter: 2011Q2

REPORT INFORMATION
  Report Type: 
  Country: None (occurrence: None)
  Receive Date: 20110527
  Receipt Date: 20110511
  Transmission Date: 20111010
  Serious: Yes (Life-Threatening, Hospitalization, Other)
  Sender: FDA-Public Use
  Company Number: US-GENENTECH-301814

PATIENT
  Sex: Female
  Weight: 96.8 kg

DRUGS (32)
  1. FLONASE [Concomitant]
     Indication: HYPERSENSITIVITY
     Dosage: UNK
     Dates: start: 20090227
  2. ZYFLO [Concomitant]
     Dosage: 600 MG, BID
     Route: 048
     Dates: start: 20080101
  3. PATANASE [Concomitant]
     Indication: PRODUCT USED FOR UNKNOWN INDICATION
  4. HYDROCHLOROTHIAZIDE [Concomitant]
     Indication: HYPERTENSION
     Dosage: 25 MG, QD
     Route: 048
     Dates: start: 19940101
  5. ALLEGRA [Concomitant]
     Indication: HYPERSENSITIVITY
     Dosage: UNK TABLET, QD
     Dates: start: 20090227
  6. NORVASC [Concomitant]
     Indication: ANGINA PECTORIS
     Dosage: 10 MG, QD
     Route: 048
     Dates: start: 19940401
  7. FLONASE [Concomitant]
     Dosage: 50 A?G, BID
     Dates: start: 20080101
  8. PREDNISONE [Concomitant]
     Indication: ASTHMA
     Dosage: 20 MG, QD
     Dates: start: 20090227
  9. PULMICORT [Concomitant]
     Indication: ASTHMA
     Dosage: UNK
     Dates: start: 20100127
  10. COZAAR [Concomitant]
     Indication: HYPERTENSION
     Dosage: 100 MG, QD
     Route: 048
     Dates: start: 19940101
  11. MENEST [Concomitant]
     Indication: HORMONE REPLACEMENT THERAPY
     Dosage: 0.3 MG, QD
     Route: 048
     Dates: start: 20030101
  12. ALVESCO [Concomitant]
     Dosage: 160 A?G, PRN
     Dates: start: 20100101
  13. PREDNISONE [Concomitant]
     Dosage: 20 MG, QD
     Route: 048
     Dates: start: 20080101
  14. PROTONIX [Concomitant]
     Indication: GASTROOESOPHAGEAL REFLUX DISEASE
     Dosage: 40 MG, QD
     Route: 048
  15. XOLAIR [Suspect]
     Indication: ASTHMA
     Dosage: 300 MG, Q4W
     Route: 058
     Dates: start: 20100413
  16. VENTOLIN [Concomitant]
     Indication: PRODUCT USED FOR UNKNOWN INDICATION
  17. XOPENEX [Concomitant]
     Indication: ASTHMA
     Dosage: UNK
     Dates: start: 20090227
  18. MESTINON [Concomitant]
     Indication: MYASTHENIA GRAVIS
     Dosage: 30 MG, TID
     Route: 048
     Dates: start: 20090801
  19. VITAMIN D [Concomitant]
     Indication: PRODUCT USED FOR UNKNOWN INDICATION
  20. MULTI-VITAMIN [Concomitant]
     Indication: PRODUCT USED FOR UNKNOWN INDICATION
  21. ALVESCO [Concomitant]
     Indication: ASTHMA
     Dosage: UNK A?G, BID
     Dates: start: 20100127
  22. FLOVENT [Concomitant]
     Indication: ASTHMA
     Dosage: 250 MG, BID
     Dates: start: 20100101
  23. ASPIRIN [Concomitant]
     Indication: CORONARY ARTERY DISEASE
     Dosage: 81 MG, QD
     Route: 048
     Dates: start: 19940419
  24. SYMBICORT [Concomitant]
     Indication: PRODUCT USED FOR UNKNOWN INDICATION
  25. PAXIL [Concomitant]
     Indication: DEPRESSION
     Dosage: 20 MG, QD
     Route: 048
  26. BROVANA [Concomitant]
     Indication: ASTHMA
     Dosage: UNK
     Dates: start: 20100127
  27. ZYFLO [Concomitant]
     Indication: ASTHMA
     Dosage: UNK TABLET, QID
     Dates: start: 20090227
  28. LOVAZA [Concomitant]
     Indication: PRODUCT USED FOR UNKNOWN INDICATION
  29. PERFOROMIST [Concomitant]
     Indication: ASTHMA
     Dosage: 20 A?G, BID
     Dates: start: 20100101
  30. NORVASC [Concomitant]
     Indication: HYPERTENSION
  31. XOLAIR [Suspect]
     Dosage: UNK
     Dates: start: 20100511
  32. XYZAL [Concomitant]
     Indication: HYPERSENSITIVITY
     Dosage: 5 MG, QD
     Route: 048
     Dates: start: 20090101

REACTIONS (8)
  - THROAT TIGHTNESS [None]
  - PNEUMONIA [None]
  - URTICARIA [None]
  - BLOOD PRESSURE DECREASED [None]
  - BLOOD PRESSURE INCREASED [None]
  - BLINDNESS [None]
  - DYSPNOEA [None]
  - HEADACHE [None]
